FAERS Safety Report 21064044 (Version 1)
Quarter: 2022Q3

REPORT INFORMATION
  Report Type: Spontaneous
  Country: US (occurrence: None)
  Receive Date: 20220708
  Receipt Date: 20220708
  Transmission Date: 20221027
  Serious: Yes (Disabling)
  Sender: FDA-Public Use
  Company Number: None

PATIENT
  Age: 43 Year
  Sex: Female
  Weight: 71.1 kg

DRUGS (1)
  1. SCOPOLAMINE [Suspect]
     Active Substance: SCOPOLAMINE
     Indication: Nausea
     Dates: start: 20220527, end: 20220529

REACTIONS (3)
  - Vision blurred [None]
  - Product prescribing issue [None]
  - Nausea [None]

NARRATIVE: CASE EVENT DATE: 20220529
